FAERS Safety Report 12160539 (Version 1)
Quarter: 2016Q1

REPORT INFORMATION
  Report Type: Spontaneous
  Country: VE (occurrence: VE)
  Receive Date: 20160308
  Receipt Date: 20160308
  Transmission Date: 20160526
  Serious: Yes (Hospitalization, Other)
  Sender: FDA-Public Use
  Company Number: VE-JNJFOC-20160305430

PATIENT
  Age: 46 Year
  Sex: Female

DRUGS (1)
  1. REMICADE [Suspect]
     Active Substance: INFLIXIMAB
     Indication: PRODUCT USED FOR UNKNOWN INDICATION
     Route: 042

REACTIONS (5)
  - Blood pressure increased [Unknown]
  - Upper gastrointestinal haemorrhage [Not Recovered/Not Resolved]
  - Arthralgia [Unknown]
  - Deformity [Unknown]
  - Drug dose omission [Unknown]
